FAERS Safety Report 8230719-6 (Version None)
Quarter: 2012Q1

REPORT INFORMATION
  Report Type: 
  Country: None (occurrence: None)
  Receive Date: 20120321
  Receipt Date: 20120308
  Transmission Date: 20120608
  Serious: Yes (Death)
  Sender: FDA-Public Use
  Company Number: CIO1204546

PATIENT
  Sex: Female

DRUGS (2)
  1. NYQUIL, FORM/VERSION/FLAVOR UNKNOWN (ETHANOL UNKNOWN UNK, CHLORPHENIRA [Suspect]
     Indication: SINUS DISORDER
  2. NYQUIL, FORM/VERSION/FLAVOR UNKNOWN (ETHANOL UNKNOWN UNK, CHLORPHENIRA [Suspect]
     Indication: NASOPHARYNGITIS

REACTIONS (2)
  - HEPATIC FAILURE [None]
  - TOXICITY TO VARIOUS AGENTS [None]
